FAERS Safety Report 6363012-7 (Version None)
Quarter: 2009Q3

REPORT INFORMATION
  Report Type: 
  Country: None (occurrence: None)
  Receive Date: 20090919
  Receipt Date: 20090616
  Transmission Date: 20100115
  Serious: No
  Sender: FDA-Public Use
  Company Number: US-ABBOTT-09P-163-0580028-00

PATIENT
  Sex: Female

DRUGS (4)
  1. HUMIRA [Suspect]
     Indication: RHEUMATOID ARTHRITIS
     Route: 058
     Dates: start: 20040101, end: 20090101
  2. HUMIRA [Suspect]
     Route: 058
     Dates: start: 20090101
  3. EVISTA [Concomitant]
     Indication: RHEUMATOID ARTHRITIS
     Dosage: DAILY
  4. CELEBREX [Concomitant]
     Indication: RHEUMATOID ARTHRITIS
     Dosage: DAILY

REACTIONS (3)
  - ARTHRITIS [None]
  - DYSPNOEA [None]
  - INJECTION SITE NODULE [None]
